FAERS Safety Report 7952768-5 (Version None)
Quarter: 2011Q4

REPORT INFORMATION
  Report Type: 
  Country: None (occurrence: None)
  Receive Date: 20111201
  Receipt Date: 20111130
  Transmission Date: 20120403
  Serious: No
  Sender: FDA-Public Use
  Company Number: US-BAYER-2011-115339

PATIENT
  Age: 46 Year
  Sex: Female
  Weight: 56.689 kg

DRUGS (9)
  1. BETASERON [Suspect]
     Dosage: 0.3 MG, QOD
     Route: 058
  2. VALIUM [Concomitant]
  3. BENADRYL CAP 25 MG [Concomitant]
  4. FISH OIL CAP [Concomitant]
  5. VITAMIN D AND ANALOGUES [Concomitant]
  6. IMITREX [Concomitant]
  7. ATIVAN [Concomitant]
  8. CALCIUM D [Concomitant]
  9. AMBIEN [Concomitant]

REACTIONS (2)
  - INJECTION SITE HAEMATOMA [None]
  - INJECTION SITE PAIN [None]
